FAERS Safety Report 14025669 (Version 2)
Quarter: 2017Q4

REPORT INFORMATION
  Report Type: Spontaneous
  Country: US (occurrence: US)
  Receive Date: 20170929
  Receipt Date: 20171110
  Transmission Date: 20180321
  Serious: No
  Sender: FDA-Public Use
  Company Number: US-GLAXOSMITHKLINE-US2017GSK149622

PATIENT
  Age: 58 Year
  Sex: Male

DRUGS (1)
  1. BREO ELLIPTA [Suspect]
     Active Substance: FLUTICASONE FUROATE\VILANTEROL TRIFENATATE
     Indication: BRONCHITIS CHRONIC
     Dosage: 1 PUFF(S), 1D
     Route: 055
     Dates: start: 20170908

REACTIONS (4)
  - Drug ineffective [Unknown]
  - Product quality issue [Unknown]
  - Wrong technique in device usage process [Unknown]
  - Drug dose omission [Unknown]

NARRATIVE: CASE EVENT DATE: 20170925
